FAERS Safety Report 13651403 (Version 2)
Quarter: 2018Q1

REPORT INFORMATION
  Report Type: Spontaneous
  Country: US (occurrence: US)
  Receive Date: 20170614
  Receipt Date: 20180305
  Transmission Date: 20180508
  Serious: Yes (Other)
  Sender: FDA-Public Use
  Company Number: US-LEXICON PHARMACEUTICALS, INC-17-1606-00252

PATIENT
  Age: 70 Year
  Sex: Male

DRUGS (21)
  1. CREON [Concomitant]
     Active Substance: PANCRELIPASE AMYLASE\PANCRELIPASE LIPASE\PANCRELIPASE PROTEASE
  2. LOSARTAN. [Concomitant]
     Active Substance: LOSARTAN
  3. ONDANSETRON [Concomitant]
     Active Substance: ONDANSETRON
  4. CHOLESTYRAMINE. [Concomitant]
     Active Substance: CHOLESTYRAMINE
  5. FEXOFENADINE [Concomitant]
     Active Substance: FEXOFENADINE\FEXOFENADINE HYDROCHLORIDE
  6. POTASSIUM-HCTZ [Concomitant]
  7. MULTIVITAMIN ADULT [Concomitant]
  8. VITAMIN C [Concomitant]
     Active Substance: ASCORBIC ACID
  9. VENTOLIN HFA [Concomitant]
     Active Substance: ALBUTEROL SULFATE
  10. SANDOSTATIN LAR DEPOT [Concomitant]
     Active Substance: OCTREOTIDE ACETATE
  11. IMODIUM [Concomitant]
     Active Substance: LOPERAMIDE HYDROCHLORIDE
  12. TELOTRISTAT ETHYL [Suspect]
     Active Substance: TELOTRISTAT ETHYL
     Indication: CARCINOID SYNDROME
     Route: 048
     Dates: start: 20170424
  13. VITAMIN D3 [Concomitant]
     Active Substance: CHOLECALCIFEROL
  14. PROBIOTIC [Concomitant]
     Active Substance: PROBIOTICS NOS
  15. ANDROGEL [Concomitant]
     Active Substance: TESTOSTERONE
  16. CIALIS [Concomitant]
     Active Substance: TADALAFIL
  17. LEVOTHYROXINE. [Concomitant]
     Active Substance: LEVOTHYROXINE
  18. PROCHLORPERAZINE MALEATE. [Concomitant]
     Active Substance: PROCHLORPERAZINE MALEATE
  19. CYANOCOBALAMIN. [Concomitant]
     Active Substance: CYANOCOBALAMIN
  20. SPIRIVA [Concomitant]
     Active Substance: TIOTROPIUM BROMIDE MONOHYDRATE
  21. DIPHENOXYLATE-ATROPINE [Concomitant]
     Active Substance: ATROPINE\DIPHENOXYLATE

REACTIONS (2)
  - Diarrhoea [Not Recovered/Not Resolved]
  - Abdominal neoplasm [Not Recovered/Not Resolved]

NARRATIVE: CASE EVENT DATE: 201705
